FAERS Safety Report 6522931-9 (Version None)
Quarter: 2009Q4

REPORT INFORMATION
  Report Type: 
  Country: None (occurrence: None)
  Receive Date: 20091230
  Receipt Date: 20091224
  Transmission Date: 20100525
  Serious: Yes (Hospitalization)
  Sender: FDA-Public Use
  Company Number: US-ABBOTT-09P-163-0616392-00

PATIENT
  Age: 34 Year
  Sex: Male

DRUGS (2)
  1. ADALIMUMAB [Suspect]
     Indication: POUCHITIS
  2. INFLIXIMAB [Suspect]
     Indication: POUCHITIS

REACTIONS (1)
  - MYELOPROLIFERATIVE DISORDER [None]
